FAERS Safety Report 8263433-1 (Version None)
Quarter: 2012Q2

REPORT INFORMATION
  Report Type: 
  Country: None (occurrence: None)
  Receive Date: 20120405
  Receipt Date: 20120213
  Transmission Date: 20120825
  Serious: Yes (Other)
  Sender: FDA-Public Use
  Company Number: PHHY2012EG024988

PATIENT

DRUGS (2)
  1. DEFERIPRONE [Suspect]
     Indication: CHELATION THERAPY
     Dosage: 75 MG/KG, IN THREE DIVIDED DOSES 1 H BEFORE MEAL
     Route: 048
  2. DESFERAL [Suspect]
     Dosage: 40 MG/KG, DAILY (8-10 H)
     Route: 058

REACTIONS (1)
  - ARTHROPATHY [None]
